FAERS Safety Report 11479628 (Version 1)
Quarter: 2015Q3

REPORT INFORMATION
  Report Type: Report from Study
  Country: NL (occurrence: NL)
  Receive Date: 20150909
  Receipt Date: 20150909
  Transmission Date: 20151125
  Serious: Yes (Hospitalization)
  Sender: FDA-Public Use
  Company Number: NL-ROCHE-1551599

PATIENT
  Age: 72 Year
  Sex: Female

DRUGS (7)
  1. CODEINE [Concomitant]
     Active Substance: CODEINE
     Dosage: PRN
     Route: 065
     Dates: start: 20140101
  2. LISINOPRIL. [Concomitant]
     Active Substance: LISINOPRIL
     Route: 065
     Dates: start: 20140101
  3. FUROSEMIDE. [Concomitant]
     Active Substance: FUROSEMIDE
     Route: 065
     Dates: start: 20140101
  4. AMITRIPTYLINE [Concomitant]
     Active Substance: AMITRIPTYLINE
     Route: 065
     Dates: start: 20140101
  5. PACLITAXEL. [Suspect]
     Active Substance: PACLITAXEL
     Indication: BREAST CANCER METASTATIC
     Dosage: DATE OF LAST DOSE PRIOR TO SAE: 23/OCT/2014
     Route: 042
     Dates: start: 20140717
  6. INSULINE [Concomitant]
     Active Substance: INSULIN NOS
     Route: 065
     Dates: start: 19900101
  7. BEVACIZUMAB [Suspect]
     Active Substance: BEVACIZUMAB
     Indication: BREAST CANCER METASTATIC
     Dosage: DATE OF LAST DOSE PRIOR TO FIRST OCCURANCE OF PLEURAL EFFUSION: 08/JAN/2015?DATE OF LAST DOSE PRIOR
     Route: 042
     Dates: start: 20140717

REACTIONS (2)
  - Pleural effusion [Recovered/Resolved with Sequelae]
  - Pleural effusion [Recovered/Resolved]

NARRATIVE: CASE EVENT DATE: 20150114
